FAERS Safety Report 23964883 (Version 1)
Quarter: 2024Q2

REPORT INFORMATION
  Report Type: Spontaneous
  Country: US (occurrence: None)
  Receive Date: 20240612
  Receipt Date: 20240612
  Transmission Date: 20240715
  Serious: Yes (Other)
  Sender: FDA-Public Use
  Company Number: US-ROCHE-3578053

PATIENT
  Sex: Female

DRUGS (1)
  1. XOLAIR [Suspect]
     Active Substance: OMALIZUMAB
     Indication: Mast cell activation syndrome
     Route: 065
     Dates: start: 2022

REACTIONS (4)
  - Anaphylactic reaction [Unknown]
  - Off label use [Unknown]
  - Product dose omission issue [Unknown]
  - Malaise [Unknown]

NARRATIVE: CASE EVENT DATE: 20220101
